FAERS Safety Report 4929398-2 (Version None)
Quarter: 2006Q1

REPORT INFORMATION
  Report Type: 
  Country: None (occurrence: None)
  Receive Date: 20060224
  Receipt Date: 20060215
  Transmission Date: 20060701
  Serious: Yes (Hospitalization, Other)
  Sender: FDA-Public Use
  Company Number: 2005-12-0429

PATIENT
  Age: 56 Year
  Sex: Male
  Weight: 60 kg

DRUGS (10)
  1. PEG-INTRON [Suspect]
     Indication: HEPATITIS C
     Dosage: SEE IMAGE
     Route: 058
     Dates: start: 20050330, end: 20050330
  2. PEG-INTRON [Suspect]
     Indication: HEPATITIS C
     Dosage: SEE IMAGE
     Route: 058
     Dates: start: 20050406, end: 20050816
  3. PEG-INTRON [Suspect]
     Indication: HEPATITIS C
     Dosage: SEE IMAGE
     Route: 058
     Dates: start: 20050330, end: 20051130
  4. PEG-INTRON [Suspect]
     Indication: HEPATITIS C
     Dosage: SEE IMAGE
     Route: 058
     Dates: start: 20050823, end: 20051130
  5. REBETOL [Suspect]
     Indication: HEPATITIS C
     Dosage: 800-600 MG ORAL; 800 MG ORAL; 600 MG ORAL; 600 MG ORAL
     Route: 048
     Dates: start: 20050320, end: 20050412
  6. REBETOL [Suspect]
     Indication: HEPATITIS C
     Dosage: 800-600 MG ORAL; 800 MG ORAL; 600 MG ORAL; 600 MG ORAL
     Route: 048
     Dates: start: 20050413, end: 20050816
  7. REBETOL [Suspect]
     Indication: HEPATITIS C
     Dosage: 800-600 MG ORAL; 800 MG ORAL; 600 MG ORAL; 600 MG ORAL
     Route: 048
     Dates: start: 20050330, end: 20051130
  8. REBETOL [Suspect]
     Indication: HEPATITIS C
     Dosage: 800-600 MG ORAL; 800 MG ORAL; 600 MG ORAL; 600 MG ORAL
     Route: 048
     Dates: start: 20050823, end: 20051130
  9. CANFERON [Concomitant]
  10. NORVASC [Concomitant]

REACTIONS (14)
  - BLOOD PRESSURE SYSTOLIC INCREASED [None]
  - CEREBRAL HAEMORRHAGE [None]
  - ERYTHEMA [None]
  - FALL [None]
  - HAEMATOMA [None]
  - HAEMOGLOBIN DECREASED [None]
  - HEMIPARESIS [None]
  - NEUTROPHIL COUNT DECREASED [None]
  - PLATELET COUNT DECREASED [None]
  - PRURITUS [None]
  - PUTAMEN HAEMORRHAGE [None]
  - TREATMENT NONCOMPLIANCE [None]
  - VENTRICULAR HYPERTROPHY [None]
  - WHITE BLOOD CELL COUNT DECREASED [None]
